FAERS Safety Report 18545823 (Version 2)
Quarter: 2020Q4

REPORT INFORMATION
  Report Type: Report from Study
  Country: US (occurrence: US)
  Receive Date: 20201125
  Receipt Date: 20201224
  Transmission Date: 20210114
  Serious: Yes (Hospitalization, Disabling, Other)
  Sender: FDA-Public Use
  Company Number: NVSC2020US309167

PATIENT
  Age: 72 Year
  Sex: Male
  Weight: 71.9 kg

DRUGS (2)
  1. TRAMADOL. [Concomitant]
     Active Substance: TRAMADOL
     Indication: PAIN
     Dosage: 50 MG, QID (PRN)
     Route: 048
     Dates: start: 20201108
  2. TABRECTA [Suspect]
     Active Substance: CAPMATINIB
     Indication: NON-SMALL CELL LUNG CANCER
     Dosage: 400 MG, BID
     Route: 048
     Dates: start: 20200902, end: 20201020

REACTIONS (9)
  - Blood bilirubin increased [Unknown]
  - Non-small cell lung cancer [Unknown]
  - Blood creatinine increased [Unknown]
  - Pneumonitis [Recovered/Resolved]
  - Decreased appetite [Unknown]
  - Dyspnoea [Recovering/Resolving]
  - Oedema peripheral [Recovered/Resolved]
  - Fatigue [Recovered/Resolved]
  - Nausea [Unknown]

NARRATIVE: CASE EVENT DATE: 20200925
